FAERS Safety Report 12007320 (Version 1)
Quarter: 2016Q1

REPORT INFORMATION
  Report Type: Spontaneous
  Country: BR (occurrence: BR)
  Receive Date: 20160205
  Receipt Date: 20160205
  Transmission Date: 20160526
  Serious: Yes (Other)
  Sender: FDA-Public Use
  Company Number: BR-ABBVIE-16K-020-1550014-00

PATIENT

DRUGS (1)
  1. HUMIRA [Suspect]
     Active Substance: ADALIMUMAB
     Indication: PSORIATIC ARTHROPATHY
     Route: 058
     Dates: start: 2013

REACTIONS (4)
  - Lupus-like syndrome [Unknown]
  - Antinuclear antibody positive [Unknown]
  - Antinuclear antibody positive [Unknown]
  - Histone antibody positive [Unknown]

NARRATIVE: CASE EVENT DATE: 201402
